FAERS Safety Report 7338228-3 (Version None)
Quarter: 2011Q1

REPORT INFORMATION
  Report Type: 
  Country: None (occurrence: None)
  Receive Date: 20110303
  Receipt Date: 20110303
  Transmission Date: 20110831
  Serious: Yes (Other)
  Sender: FDA-Public Use
  Company Number: None

PATIENT
  Age: 69 Year
  Sex: Female
  Weight: 56.246 kg

DRUGS (1)
  1. PACLITAXEL [Suspect]
     Indication: OVARIAN CANCER
     Dosage: 125MG WEEKLY IV DRIP
     Route: 041
     Dates: start: 20110225, end: 20110225

REACTIONS (4)
  - FEELING HOT [None]
  - VITREOUS FLOATERS [None]
  - SOMNOLENCE [None]
  - ERYTHEMA [None]
